FAERS Safety Report 5518355-3 (Version None)
Quarter: 2007Q4

REPORT INFORMATION
  Report Type: 
  Country: None (occurrence: None)
  Receive Date: 20071115
  Receipt Date: 20071107
  Transmission Date: 20080405
  Serious: Yes (Other)
  Sender: FDA-Public Use
  Company Number: US-ROCHE-530101

PATIENT
  Age: 89 Year
  Sex: Female

DRUGS (6)
  1. BONIVA [Suspect]
     Indication: DRUG USE FOR UNKNOWN INDICATION
     Route: 065
  2. ATENOLOL [Concomitant]
  3. PREVACID [Concomitant]
  4. NORVASC [Concomitant]
  5. CALCIUM NOS [Concomitant]
  6. VITAMINS NOS [Concomitant]

REACTIONS (1)
  - THROMBOPHLEBITIS [None]
